FAERS Safety Report 26165646 (Version 1)
Quarter: 2025Q4

REPORT INFORMATION
  Report Type: Spontaneous
  Country: US (occurrence: US)
  Receive Date: 20251216
  Receipt Date: 20251216
  Transmission Date: 20260118
  Serious: Yes (Hospitalization)
  Sender: AMGEN
  Company Number: US-AMGEN-USASP2025244272

PATIENT
  Age: 73 Year
  Sex: Female

DRUGS (4)
  1. PREDNISONE [Suspect]
     Active Substance: PREDNISONE
     Indication: Ovarian cancer stage III
     Dosage: 60 MILLIGRAM
     Route: 065
  2. METHYLPREDNISOLONE [Concomitant]
     Active Substance: METHYLPREDNISOLONE
     Indication: Ovarian cancer stage III
     Dosage: 1 GRAM
     Route: 040
  3. CARBOPLATIN [Concomitant]
     Active Substance: CARBOPLATIN
     Indication: Ovarian cancer stage III
     Dosage: UNK
     Route: 065
  4. DOXORUBICIN [Concomitant]
     Active Substance: DOXORUBICIN
     Indication: Ovarian cancer stage III

REACTIONS (5)
  - Infection [Unknown]
  - Anaemia [Unknown]
  - Nervous system disorder [Unknown]
  - Asthenia [Unknown]
  - Off label use [Unknown]
